FAERS Safety Report 7600542-1 (Version None)
Quarter: 2011Q2

REPORT INFORMATION
  Report Type: 
  Country: None (occurrence: None)
  Receive Date: 20110627
  Receipt Date: 20100826
  Transmission Date: 20111010
  Serious: Yes (Other)
  Sender: FDA-Public Use
  Company Number: VISP-PR-1008S-0424

PATIENT
  Age: 64 Year
  Sex: Female

DRUGS (4)
  1. MIDAZOLAM HYDROCHLORIDE (VERSED) (MIDAZOLAM HYDROCHLORIDE) [Concomitant]
  2. DIPHENHYDRAMINE HYDROCHLORIDE (BENADRYL) (DIPHENHYDRAMINE HYDROCHLORID [Concomitant]
  3. VISIPAQUE [Suspect]
     Indication: PRODUCT USED FOR UNKNOWN INDICATION
     Dosage: 160 ML, SINGLE DOSE, INTRA-ARTERIAL
     Route: 013
     Dates: start: 20100824, end: 20100824
  4. FENTANYL [Concomitant]

REACTIONS (9)
  - OXYGEN SATURATION DECREASED [None]
  - FAECAL INCONTINENCE [None]
  - RASH GENERALISED [None]
  - CARDIAC ARREST [None]
  - PULMONARY CONGESTION [None]
  - LETHARGY [None]
  - VOMITING [None]
  - ANAPHYLACTOID SHOCK [None]
  - NAUSEA [None]
